FAERS Safety Report 12947059 (Version 1)
Quarter: 2016Q4

REPORT INFORMATION
  Report Type: Spontaneous
  Country: US (occurrence: US)
  Receive Date: 20161116
  Receipt Date: 20161116
  Transmission Date: 20170207
  Serious: No
  Sender: FDA-Public Use
  Company Number: US-PFIZER INC-2016533878

PATIENT
  Age: 47 Year
  Sex: Male
  Weight: 137.44 kg

DRUGS (1)
  1. CORTISONE ACETATE. [Suspect]
     Active Substance: CORTISONE ACETATE
     Indication: INTERVERTEBRAL DISC DISORDER
     Dosage: UNK

REACTIONS (1)
  - Drug ineffective [Unknown]
